FAERS Safety Report 6353329-4 (Version None)
Quarter: 2009Q3

REPORT INFORMATION
  Report Type: 
  Country: None (occurrence: None)
  Receive Date: 20090912
  Receipt Date: 20081112
  Transmission Date: 20100115
  Serious: No
  Sender: FDA-Public Use
  Company Number: US-BAUSCH-2008BL004802

PATIENT
  Age: 72 Year
  Sex: Female

DRUGS (10)
  1. ERYTHROCIN 1% [Suspect]
     Indication: EYE INFECTION
     Route: 047
     Dates: start: 20080712
  2. RESTASIS [Concomitant]
     Indication: DRY EYE
     Route: 047
     Dates: start: 20080301
  3. ASTELIN [Concomitant]
     Indication: SEASONAL ALLERGY
     Route: 045
  4. DIOVAN [Concomitant]
     Indication: DRUG USE FOR UNKNOWN INDICATION
     Route: 048
  5. DITROPAN XL [Concomitant]
     Indication: DRUG USE FOR UNKNOWN INDICATION
     Route: 048
  6. PLAVIX [Concomitant]
     Indication: DRUG USE FOR UNKNOWN INDICATION
     Route: 048
  7. SYNTHROID [Concomitant]
     Indication: DRUG USE FOR UNKNOWN INDICATION
     Route: 048
  8. HYDROCHLOROTHIAZIDE [Concomitant]
     Indication: DRUG USE FOR UNKNOWN INDICATION
     Route: 048
  9. POTASSIUM CHLORIDE [Concomitant]
     Indication: DRUG USE FOR UNKNOWN INDICATION
     Route: 048
  10. NEXIUM [Concomitant]
     Indication: DRUG USE FOR UNKNOWN INDICATION
     Route: 048

REACTIONS (3)
  - CONDITION AGGRAVATED [None]
  - DRUG EFFECT DECREASED [None]
  - FOREIGN BODY SENSATION IN EYES [None]
